FAERS Safety Report 15702556 (Version 2)
Quarter: 2018Q4

REPORT INFORMATION
  Report Type: Other
  Country: US (occurrence: US)
  Receive Date: 20181210
  Receipt Date: 20181210
  Transmission Date: 20190205
  Serious: Yes (Life-Threatening, Hospitalization)
  Sender: FDA-Public Use
  Company Number: US-GUARDIAN DRUG COMPANY-2059893

PATIENT
  Age: 29 Year
  Sex: Female

DRUGS (1)
  1. CHILDRENS IBUPROFEN [Suspect]
     Active Substance: IBUPROFEN
     Indication: PRODUCT USED FOR UNKNOWN INDICATION
     Route: 065

REACTIONS (7)
  - Overdose [Recovering/Resolving]
  - Hypothermia [Unknown]
  - Metabolic acidosis [Unknown]
  - Toxicity to various agents [Recovering/Resolving]
  - Mental status changes [Recovering/Resolving]
  - Acute kidney injury [Recovering/Resolving]
  - Hepatotoxicity [Recovering/Resolving]
